FAERS Safety Report 5658067-9 (Version None)
Quarter: 2008Q1

REPORT INFORMATION
  Report Type: 
  Country: None (occurrence: None)
  Receive Date: 20080310
  Receipt Date: 20061226
  Transmission Date: 20080703
  Serious: No
  Sender: FDA-Public Use
  Company Number: US-BAYER-200615094BCC

PATIENT
  Age: 42 Year
  Sex: Female
  Weight: 127 kg

DRUGS (3)
  1. ALEVE [Suspect]
     Indication: HEADACHE
     Dosage: TOTAL DAILY DOSE: 220 MG  UNIT DOSE: 220 MG
     Route: 048
     Dates: start: 20060706
  2. PHENOBARBITAL TAB [Concomitant]
  3. DILANTIN [Concomitant]

REACTIONS (1)
  - HEADACHE [None]
